FAERS Safety Report 24391691 (Version 2)
Quarter: 2024Q4

REPORT INFORMATION
  Report Type: Spontaneous
  Country: GB (occurrence: GB)
  Receive Date: 20241003
  Receipt Date: 20241011
  Transmission Date: 20250114
  Serious: Yes (Other)
  Sender: NOVARTIS
  Company Number: GB-002147023-NVSC2024GB193349

PATIENT
  Sex: Female

DRUGS (1)
  1. KESIMPTA [Suspect]
     Active Substance: OFATUMUMAB
     Indication: Relapsing multiple sclerosis
     Dosage: UNK
     Route: 065
     Dates: start: 202308

REACTIONS (4)
  - Multiple sclerosis [Unknown]
  - Muscular weakness [Unknown]
  - Gait disturbance [Unknown]
  - Sensory disturbance [Unknown]
